FAERS Safety Report 4961004-3 (Version None)
Quarter: 2006Q1

REPORT INFORMATION
  Report Type: 
  Country: None (occurrence: None)
  Receive Date: 20060328
  Receipt Date: 20060317
  Transmission Date: 20060701
  Serious: Yes (Other)
  Sender: FDA-Public Use
  Company Number: DEWYE479317MAR06

PATIENT
  Age: 38 Year
  Sex: Male

DRUGS (4)
  1. RAPAMUNE [Suspect]
     Indication: PROPHYLAXIS AGAINST TRANSPLANT REJECTION
     Dosage: 7 MG
     Dates: start: 20020115
  2. PREDNISOLONE [Concomitant]
  3. DOXYCLINE (DOXYCYCLINE) [Concomitant]
  4. ZOCOR [Concomitant]

REACTIONS (1)
  - DYSGEUSIA [None]
